FAERS Safety Report 8059448-9 (Version None)
Quarter: 2012Q1

REPORT INFORMATION
  Report Type: 
  Country: None (occurrence: None)
  Receive Date: 20120120
  Receipt Date: 20120118
  Transmission Date: 20120608
  Serious: Yes (Other)
  Sender: FDA-Public Use
  Company Number: US-EISAI INC-E2080-00437-SPO-US

PATIENT
  Age: 14 Year
  Sex: Female
  Weight: 24.3 kg

DRUGS (5)
  1. KEPPRA [Concomitant]
     Route: 048
  2. DEPAKOTE [Concomitant]
     Route: 048
  3. TOPAMAX [Concomitant]
     Route: 048
  4. BANZEL [Suspect]
     Indication: MYOCLONIC EPILEPSY
     Dosage: TITRATED UP TO 400 MG TWICE DAILY
     Route: 048
     Dates: start: 20110324, end: 20110801
  5. BANZEL [Suspect]
     Dosage: TITRATED DOWN TO 200 MG TWICE DAILY
     Route: 048
     Dates: start: 20110801

REACTIONS (3)
  - APHASIA [None]
  - EMOTIONAL DISORDER [None]
  - CRYING [None]
